FAERS Safety Report 19763286 (Version 1)
Quarter: 2021Q3

REPORT INFORMATION
  Report Type: Spontaneous
  Country: MX (occurrence: MX)
  Receive Date: 20210830
  Receipt Date: 20210830
  Transmission Date: 20211014
  Serious: Yes (Disabling)
  Sender: FDA-Public Use
  Company Number: MX-ABBVIE-21K-107-4058930-00

PATIENT
  Sex: Male
  Weight: 107 kg

DRUGS (2)
  1. TELMISARTAN. [Concomitant]
     Active Substance: TELMISARTAN
     Indication: HYPERTENSION
  2. HUMIRA [Suspect]
     Active Substance: ADALIMUMAB
     Indication: SPONDYLITIS
     Route: 058
     Dates: start: 2019, end: 2020

REACTIONS (3)
  - Back pain [Not Recovered/Not Resolved]
  - Gait disturbance [Unknown]
  - Spinal deformity [Not Recovered/Not Resolved]
